FAERS Safety Report 23390364 (Version 1)
Quarter: 2024Q1

REPORT INFORMATION
  Report Type: Report from Study
  Country: CA (occurrence: CA)
  Receive Date: 20240111
  Receipt Date: 20240111
  Transmission Date: 20240410
  Serious: Yes (Death)
  Sender: FDA-Public Use
  Company Number: CA-BAYER-2024A004611

PATIENT
  Sex: Female

DRUGS (2)
  1. EYLEA [Suspect]
     Active Substance: AFLIBERCEPT
     Indication: Diabetic retinal oedema
     Dosage: UNK, STRENGTH: 40MG/ML
     Dates: start: 20230315, end: 20230315
  2. EYLEA [Suspect]
     Active Substance: AFLIBERCEPT
     Dosage: UNK, STRENGTH: 40MG/ML
     Dates: start: 20230412, end: 20230412

REACTIONS (1)
  - Death [Fatal]
